FAERS Safety Report 5440765-3 (Version None)
Quarter: 2007Q3

REPORT INFORMATION
  Report Type: 
  Country: None (occurrence: None)
  Receive Date: 20070831
  Receipt Date: 20070822
  Transmission Date: 20080115
  Serious: Yes (Disabling)
  Sender: FDA-Public Use
  Company Number: PHNR2007AU01743

PATIENT
  Age: 56 Year
  Sex: Male

DRUGS (4)
  1. TEGRETOL [Suspect]
     Indication: PAIN
     Dosage: 200MG DAILY
     Route: 048
     Dates: start: 20061219, end: 20061225
  2. TEGRETOL [Suspect]
     Dosage: 1 GRAM DAILY
     Route: 048
     Dates: start: 20061225, end: 20070125
  3. PREXIGE [Suspect]
     Dosage: 200 MG, DAILY
     Route: 048
     Dates: start: 20061219, end: 20070109
  4. PREXIGE [Suspect]
     Dosage: 400 MG DAILY
     Route: 048
     Dates: start: 20070109, end: 20070125

REACTIONS (18)
  - ABDOMINAL TENDERNESS [None]
  - ALANINE AMINOTRANSFERASE INCREASED [None]
  - ALBUMIN URINE [None]
  - ASPARTATE AMINOTRANSFERASE INCREASED [None]
  - BLOOD ALKALINE PHOSPHATASE INCREASED [None]
  - CHILLS [None]
  - CONSTIPATION [None]
  - DYSPNOEA [None]
  - FATIGUE [None]
  - GAMMA-GLUTAMYLTRANSFERASE INCREASED [None]
  - HEADACHE [None]
  - HYPERHIDROSIS [None]
  - MALAISE [None]
  - MYALGIA [None]
  - POLLAKIURIA [None]
  - PROTEIN URINE PRESENT [None]
  - PYREXIA [None]
  - SOMNOLENCE [None]
